FAERS Safety Report 25187106 (Version 1)
Quarter: 2025Q2

REPORT INFORMATION
  Report Type: Spontaneous
  Country: US (occurrence: US)
  Receive Date: 20250411
  Receipt Date: 20250411
  Transmission Date: 20250717
  Serious: No
  Sender: AMGEN
  Company Number: US-AMGEN-USASP2025068265

PATIENT
  Age: 63 Year
  Sex: Male

DRUGS (2)
  1. TARLATAMAB [Suspect]
     Active Substance: TARLATAMAB
     Indication: Small cell lung cancer extensive stage
     Route: 065
  2. LURBINECTEDIN [Concomitant]
     Active Substance: LURBINECTEDIN
     Indication: Small cell lung cancer extensive stage

REACTIONS (1)
  - Therapeutic product effect variable [Unknown]
